FAERS Safety Report 5731746-0 (Version None)
Quarter: 2008Q2

REPORT INFORMATION
  Report Type: 
  Country: None (occurrence: None)
  Receive Date: 20080506
  Receipt Date: 20080506
  Transmission Date: 20081010
  Serious: Yes (Death)
  Sender: FDA-Public Use
  Company Number: None

PATIENT
  Age: 66 Year
  Sex: Female
  Weight: 64.4108 kg

DRUGS (1)
  1. DIGITEK [Suspect]
     Dosage: PO
     Route: 048

REACTIONS (3)
  - DIZZINESS [None]
  - HYPOTENSION [None]
  - SUDDEN DEATH [None]
